FAERS Safety Report 24555911 (Version 1)
Quarter: 2024Q4

REPORT INFORMATION
  Report Type: Spontaneous
  Country: LB (occurrence: LB)
  Receive Date: 20241028
  Receipt Date: 20241028
  Transmission Date: 20250114
  Serious: Yes (Other)
  Sender: PFIZER
  Company Number: LB-PFIZER INC-PV202400137440

PATIENT
  Age: 12 Year
  Sex: Female
  Weight: 48 kg

DRUGS (3)
  1. SOMATROPIN [Suspect]
     Active Substance: SOMATROPIN
     Indication: Growth retardation
     Dosage: 50 UG/KG, DAILY
  2. SOMATROPIN [Suspect]
     Active Substance: SOMATROPIN
     Indication: Epiphyses delayed fusion
  3. SOMATROPIN [Suspect]
     Active Substance: SOMATROPIN
     Indication: Gonadal dysgenesis

REACTIONS (1)
  - Epiphysiolysis [Recovered/Resolved]
